FAERS Safety Report 5932048-X (Version None)
Quarter: 2008Q4

REPORT INFORMATION
  Report Type: 
  Country: None (occurrence: None)
  Receive Date: 20081027
  Receipt Date: 20081017
  Transmission Date: 20090506
  Serious: Yes (Other)
  Sender: FDA-Public Use
  Company Number: JP-AMGEN-US314885

PATIENT
  Age: 64 Year
  Sex: Female

DRUGS (3)
  1. ENBREL [Suspect]
     Indication: RHEUMATOID ARTHRITIS
     Route: 058
     Dates: start: 20070219, end: 20081001
  2. PREDONINE [Concomitant]
     Route: 048
  3. RHEUMATREX [Concomitant]
     Route: 048

REACTIONS (1)
  - MULTIPLE SYSTEM ATROPHY [None]
